FAERS Safety Report 9991195 (Version 1)
Quarter: 2014Q1

REPORT INFORMATION
  Report Type: Report from Study
  Country: US (occurrence: US)
  Receive Date: 20140310
  Receipt Date: 20140310
  Transmission Date: 20141002
  Serious: No
  Sender: FDA-Public Use
  Company Number: US-ABBVIE-13P-163-1129372-00

PATIENT
  Sex: Male

DRUGS (7)
  1. HUMIRA [Suspect]
     Indication: PSORIATIC ARTHROPATHY
  2. HUMIRA [Suspect]
  3. STEROIDS [Concomitant]
     Indication: PRODUCT USED FOR UNKNOWN INDICATION
  4. PREDNISONE [Concomitant]
     Indication: PRODUCT USED FOR UNKNOWN INDICATION
     Dosage: 10 MG DAILY
  5. DIOVAN [Concomitant]
     Indication: HYPERTENSION
     Dosage: 160 MG DAILY
  6. NEXIUM [Concomitant]
     Indication: DYSPEPSIA
     Dosage: 40 MG DAILY
  7. GLUCOSAMINE [Concomitant]
     Indication: ARTHROPATHY

REACTIONS (2)
  - Drug ineffective [Not Recovered/Not Resolved]
  - Rash [Not Recovered/Not Resolved]
